FAERS Safety Report 6805014-X (Version None)
Quarter: 2010Q2

REPORT INFORMATION
  Report Type: 
  Country: None (occurrence: None)
  Receive Date: 20100628
  Receipt Date: 20070810
  Transmission Date: 20101027
  Serious: No
  Sender: FDA-Public Use
  Company Number: US-PFIZER INC-2007064667

PATIENT
  Sex: Female
  Weight: 73 kg

DRUGS (3)
  1. RELPAX [Suspect]
     Dates: start: 20061001
  2. FEXOFENADINE [Concomitant]
  3. MONTELUKAST [Concomitant]

REACTIONS (2)
  - MIGRAINE [None]
  - VOMITING [None]
